FAERS Safety Report 8866249 (Version 1)
Quarter: 2012Q4

REPORT INFORMATION
  Report Type: Report from Study
  Country: CA (occurrence: CA)
  Receive Date: 20121025
  Receipt Date: 20121025
  Transmission Date: 20130627
  Serious: Yes (Other)
  Sender: FDA-Public Use
  Company Number: CA-JNJFOC-20121013286

PATIENT
  Age: 33 Year
  Sex: Male

DRUGS (2)
  1. SIMPONI [Suspect]
     Indication: PSORIATIC ARTHROPATHY
     Route: 058
     Dates: start: 20100507, end: 20120415
  2. DEPO-MEDROL [Concomitant]
     Dates: start: 20120905

REACTIONS (4)
  - Deafness [Unknown]
  - Balance disorder [Unknown]
  - Vision blurred [Unknown]
  - Arteriovenous malformation [Unknown]
